FAERS Safety Report 6270517-6 (Version None)
Quarter: 2009Q3

REPORT INFORMATION
  Report Type: 
  Country: None (occurrence: None)
  Receive Date: 20090716
  Receipt Date: 20090529
  Transmission Date: 20100115
  Serious: Yes (Other)
  Sender: FDA-Public Use
  Company Number: US-JNJFOC-20090702005

PATIENT
  Age: 67 Year
  Sex: Female

DRUGS (2)
  1. ITRACONAZOLE [Suspect]
     Indication: EYE INFECTION FUNGAL
     Route: 048
  2. AMPHOTERICIN B [Concomitant]
     Route: 042

REACTIONS (4)
  - ANTERIOR CHAMBER FIBRIN [None]
  - CORNEAL OEDEMA [None]
  - SCLERAL DISORDER [None]
  - VISUAL IMPAIRMENT [None]
